FAERS Safety Report 7343867-X (Version None)
Quarter: 2011Q1

REPORT INFORMATION
  Report Type: 
  Country: None (occurrence: None)
  Receive Date: 20110310
  Receipt Date: 20110225
  Transmission Date: 20110831
  Serious: Yes (Hospitalization)
  Sender: FDA-Public Use
  Company Number: PHHY2011TR16574

PATIENT
  Age: 46 Year
  Sex: Female

DRUGS (2)
  1. FLUOROURACIL [Suspect]
     Dosage: 825 MG, UNK
  2. FOLINIC ACID [Concomitant]
     Dosage: 30 MG, UNK

REACTIONS (7)
  - EJECTION FRACTION DECREASED [None]
  - VENTRICULAR FIBRILLATION [None]
  - VENTRICULAR TACHYCARDIA [None]
  - SYNCOPE [None]
  - ABDOMINAL PAIN [None]
  - PULSE ABSENT [None]
  - NAUSEA [None]
